FAERS Safety Report 9329185 (Version 1)
Quarter: 2013Q2

REPORT INFORMATION
  Report Type: Spontaneous
  Country: US (occurrence: US)
  Receive Date: 20130604
  Receipt Date: 20130604
  Transmission Date: 20140414
  Serious: No
  Sender: FDA-Public Use
  Company Number: US-ASTRAZENECA-2013SE35400

PATIENT
  Age: 64 Year
  Sex: Male

DRUGS (2)
  1. BRILINTA [Suspect]
     Indication: CARDIOVASCULAR EVENT PROPHYLAXIS
     Route: 048
  2. ASPIRIN [Concomitant]
     Indication: CARDIOVASCULAR EVENT PROPHYLAXIS
     Route: 048

REACTIONS (4)
  - Mouth ulceration [Recovered/Resolved]
  - Food allergy [Unknown]
  - Rash generalised [Recovered/Resolved]
  - Rash [Recovered/Resolved]
